FAERS Safety Report 9171349 (Version 1)
Quarter: 2013Q1

REPORT INFORMATION
  Report Type: Spontaneous
  Country: US (occurrence: None)
  Receive Date: 20130206
  Receipt Date: 20130206
  Transmission Date: 20140127
  Serious: Yes (Other)
  Sender: FDA-Public Use
  Company Number: AEUSA201300041

PATIENT
  Age: 34 Year
  Sex: Female

DRUGS (1)
  1. RHO(D) IMMUNE GLOBULIN (HUMAN) [Suspect]
     Indication: PROPHYLAXIS AGAINST RH ISOIMMUNISATION
     Route: 058

REACTIONS (1)
  - Dermatofibrosarcoma protuberans [None]
